FAERS Safety Report 5532745-4 (Version None)
Quarter: 2007Q4

REPORT INFORMATION
  Report Type: 
  Country: None (occurrence: None)
  Receive Date: 20071204
  Receipt Date: 20071127
  Transmission Date: 20080405
  Serious: Yes (Other)
  Sender: FDA-Public Use
  Company Number: PHNU2006DE04012

PATIENT
  Age: 30 Year
  Sex: Female

DRUGS (2)
  1. GLEEVEC [Suspect]
     Indication: CHRONIC MYELOID LEUKAEMIA
     Dosage: FOETAL DRUG EXPOSURE VIA FATHER
     Route: 048
     Dates: start: 20060201
  2. HAEMOPROTECT [Concomitant]
     Indication: ANAEMIA
     Dosage: 50 MG/DAY
     Dates: start: 20070301, end: 20070601

REACTIONS (2)
  - CAESAREAN SECTION [None]
  - TRANSMISSION OF DRUG VIA SEMEN [None]
